FAERS Safety Report 5911077-6 (Version None)
Quarter: 2008Q4

REPORT INFORMATION
  Report Type: 
  Country: None (occurrence: None)
  Receive Date: 20081007
  Receipt Date: 20071003
  Transmission Date: 20090506
  Serious: Yes (Other)
  Sender: FDA-Public Use
  Company Number: US-BRISTOL-MYERS SQUIBB COMPANY-13929641

PATIENT
  Sex: Female

DRUGS (1)
  1. AVAPRO [Suspect]

REACTIONS (3)
  - ABDOMINAL DISTENSION [None]
  - ATRIOVENTRICULAR BLOCK SECOND DEGREE [None]
  - WEIGHT INCREASED [None]
